FAERS Safety Report 6549984-6 (Version None)
Quarter: 2010Q1

REPORT INFORMATION
  Report Type: 
  Country: None (occurrence: None)
  Receive Date: 20100125
  Receipt Date: 20100120
  Transmission Date: 20100710
  Serious: Yes (Other)
  Sender: FDA-Public Use
  Company Number: SE-BRISTOL-MYERS SQUIBB COMPANY-14817308

PATIENT
  Age: 64 Year
  Sex: Female

DRUGS (7)
  1. APROVEL FILM-COATED TABS 150 MG [Suspect]
     Indication: ESSENTIAL HYPERTENSION
     Dosage: ON 18APR08 INCREASED TO 150MG/D 05MAR08-17APR08(75MG) 18MAR08-26JUN08(150MG)
     Route: 048
     Dates: start: 20080305, end: 20080626
  2. FELODIPINE [Concomitant]
  3. SIMVASTATIN [Concomitant]
  4. HUMULIN N [Concomitant]
  5. LANTUS [Concomitant]
     Dosage: 1 DF = 100 IU/ML SOLN FOR INJ
  6. ENALAPRIL MALEATE [Concomitant]
     Indication: HYPERTENSION
  7. ENALAPRIL MALEATE [Concomitant]
     Indication: MICROALBUMINURIA

REACTIONS (2)
  - VENOUS THROMBOSIS LIMB [None]
  - VITREOUS HAEMORRHAGE [None]
